FAERS Safety Report 25406823 (Version 1)
Quarter: 2025Q2

REPORT INFORMATION
  Report Type: Spontaneous
  Country: CN (occurrence: CN)
  Receive Date: 20250606
  Receipt Date: 20250606
  Transmission Date: 20250717
  Serious: Yes (Hospitalization, Disabling)
  Sender: ABBVIE
  Company Number: CN-LUNDBECK-DKLU4015218

PATIENT
  Age: 42 Year
  Weight: 66 kg

DRUGS (2)
  1. CITALOPRAM [Suspect]
     Active Substance: CITALOPRAM
     Indication: Anxiety
     Dosage: 20 MILLIGRAM
     Route: 048
  2. QUETIAPINE FUMARATE [Suspect]
     Active Substance: QUETIAPINE FUMARATE
     Indication: Anxiety
     Dosage: 0.2 GRAM
     Route: 048

REACTIONS (1)
  - Hepatic function abnormal [Recovering/Resolving]
